FAERS Safety Report 10801301 (Version 3)
Quarter: 2015Q1

REPORT INFORMATION
  Report Type: Not Available
  Country: FR (occurrence: FR)
  Receive Date: 20150217
  Receipt Date: 20150319
  Transmission Date: 20150721
  Serious: Yes (Other)
  Sender: FDA-Public Use
  Company Number: FR-BEH-2015048714

PATIENT
  Sex: Female

DRUGS (1)
  1. HIZENTRA [Suspect]
     Active Substance: HUMAN IMMUNOGLOBULIN G
     Indication: IMMUNODEFICIENCY
     Dosage: STOP DATE: ??-JAN-2014, DOSE: VARYING, MOST OFTEN 6 G/WEEK, INJECTION PERFORMED AT LUMBAR SITE
     Route: 058
     Dates: start: 20120315

REACTIONS (8)
  - Burning sensation [Recovered/Resolved]
  - Injection site pain [Recovered/Resolved]
  - Blister [Recovered/Resolved]
  - Localised oedema [Recovered/Resolved]
  - Injection site nodule [Recovered/Resolved]
  - Paraesthesia [Recovered/Resolved]
  - Injection site inflammation [Recovered/Resolved]
  - Injection site paraesthesia [Recovered/Resolved]

NARRATIVE: CASE EVENT DATE: 2013
